FAERS Safety Report 7552561-1 (Version None)
Quarter: 2011Q2

REPORT INFORMATION
  Report Type: 
  Country: None (occurrence: None)
  Receive Date: 20110616
  Receipt Date: 20110614
  Transmission Date: 20111010
  Serious: Yes (Death, Other)
  Sender: FDA-Public Use
  Company Number: US-AMGEN-USASP2011030413

PATIENT
  Age: 83 Year
  Sex: Male

DRUGS (1)
  1. NPLATE [Suspect]
     Indication: IDIOPATHIC THROMBOCYTOPENIC PURPURA
     Dosage: 2.8 A?G/KG, UNK
     Dates: start: 20100315, end: 20101109

REACTIONS (3)
  - DEATH [None]
  - THERAPEUTIC RESPONSE DECREASED [None]
  - PLATELET COUNT ABNORMAL [None]
